FAERS Safety Report 9369897 (Version 2)
Quarter: 2013Q4

REPORT INFORMATION
  Report Type: Spontaneous
  Country: GB (occurrence: GB)
  Receive Date: 20130626
  Receipt Date: 20131023
  Transmission Date: 20140711
  Serious: Yes (Other)
  Sender: FDA-Public Use
  Company Number: GB-PFIZER INC-2013186098

PATIENT
  Age: 62 Year
  Sex: Female
  Weight: 50 kg

DRUGS (10)
  1. AMLODIPINE BESILATE [Suspect]
     Dosage: 5 MG, 1X/DAY
  2. SIMVASTATIN [Interacting]
     Dosage: 80 MG, 1X/DAY AT NIGHT - ONGOING. STARTED APPROXIMATELY 7 YEARS AGO.
  3. CLONAZEPAM [Concomitant]
     Dosage: UNK
  4. COD-LIVER OIL [Concomitant]
     Dosage: UNK
  5. EVENING PRIMROSE OIL [Concomitant]
     Dosage: UNK
  6. EZETIMIBE [Concomitant]
     Dosage: UNK
  7. REMEDEINE [Concomitant]
     Dosage: 30/500
  8. VITAMINS NOS [Concomitant]
     Dosage: UNK
  9. ERGOCALCIFEROL [Concomitant]
     Dosage: UNK
  10. CALCIUM [Concomitant]
     Dosage: UNK

REACTIONS (3)
  - Peroneal nerve palsy [Not Recovered/Not Resolved]
  - Fall [Not Recovered/Not Resolved]
  - Drug interaction [Unknown]
